FAERS Safety Report 20443212 (Version 1)
Quarter: 2022Q1

REPORT INFORMATION
  Report Type: Spontaneous
  Country: BR (occurrence: BR)
  Receive Date: 20220208
  Receipt Date: 20220208
  Transmission Date: 20220423
  Serious: Yes (Hospitalization, Other)
  Sender: FDA-Public Use
  Company Number: BR-TORRENT-00005739

PATIENT
  Age: 68 Year
  Sex: Female
  Weight: 52 kg

DRUGS (3)
  1. MIRTAZAPINE [Suspect]
     Active Substance: MIRTAZAPINE
     Indication: Depression
     Dosage: 2 TABLETS AT NIGHT
     Route: 048
     Dates: start: 202107, end: 20220126
  2. VENLAFAXINE HYDROCHLORIDE [Suspect]
     Active Substance: VENLAFAXINE HYDROCHLORIDE
     Indication: Depression
     Dosage: 1 CAPSULE IN BREAKFAST
     Route: 048
     Dates: start: 20220126
  3. DIOVAN [Concomitant]
     Active Substance: VALSARTAN
     Indication: Hypertension
     Dosage: 1 TABLET IN THE MORNING
     Route: 065

REACTIONS (5)
  - Blood pressure increased [Recovered/Resolved]
  - Feeling hot [Not Recovered/Not Resolved]
  - Presyncope [Not Recovered/Not Resolved]
  - Nausea [Not Recovered/Not Resolved]
  - Off label use [Unknown]

NARRATIVE: CASE EVENT DATE: 20210701
